FAERS Safety Report 18663226 (Version 1)
Quarter: 2020Q4

REPORT INFORMATION
  Report Type: Spontaneous
  Country: DE (occurrence: TW)
  Receive Date: 20201224
  Receipt Date: 20201224
  Transmission Date: 20210114
  Serious: Yes (Other)
  Sender: FDA-Public Use
  Company Number: TW-ELI_LILLY_AND_COMPANY-TW202012011886

PATIENT
  Age: 39 Year
  Sex: Male
  Weight: 72 kg

DRUGS (10)
  1. KEMOPLAT [Concomitant]
     Active Substance: CISPLATIN
     Indication: TONGUE NEOPLASM MALIGNANT STAGE UNSPECIFIED
     Dosage: 100 MG, UNK
     Route: 042
     Dates: start: 20130819, end: 20130910
  2. 5-FU [FLUOROURACIL] [Concomitant]
     Active Substance: FLUOROURACIL
     Indication: TONGUE NEOPLASM MALIGNANT STAGE UNSPECIFIED
     Dosage: 1472 MG, UNK
     Route: 041
     Dates: start: 20180105
  3. ERBITUX [Suspect]
     Active Substance: CETUXIMAB
     Dosage: UNK, UNKNOWN (11 TREATMENTS 700 TO 800 MG IN COMBINATION WITH 5-FU)
     Route: 041
     Dates: start: 20180306, end: 20181027
  4. ERBITUX [Suspect]
     Active Substance: CETUXIMAB
     Dosage: 700 MG, UNK
     Route: 041
     Dates: start: 20180210
  5. 5-FU [FLUOROURACIL] [Concomitant]
     Active Substance: FLUOROURACIL
     Dosage: 925-1472 MG 11 TREATMENTS IN COMBINATION WITH ERBITUX
     Route: 041
     Dates: start: 20180306, end: 20181027
  6. KEMOPLAT [Concomitant]
     Active Substance: CISPLATIN
     Dosage: 88 MG, UNK
     Route: 041
     Dates: start: 20180210, end: 20180210
  7. 5-FU [FLUOROURACIL] [Concomitant]
     Active Substance: FLUOROURACIL
     Dosage: 880 MG, UNK
     Route: 041
     Dates: start: 20180210, end: 20180210
  8. KEMOPLAT [Concomitant]
     Active Substance: CISPLATIN
     Dosage: 111 MG, UNK
     Route: 041
     Dates: start: 20180105
  9. 5-FU [FLUOROURACIL] [Concomitant]
     Active Substance: FLUOROURACIL
     Dosage: 1472 MG, UNK
     Route: 041
     Dates: start: 20180119, end: 20180119
  10. ERBITUX [Suspect]
     Active Substance: CETUXIMAB
     Indication: TONGUE NEOPLASM MALIGNANT STAGE UNSPECIFIED
     Dosage: 800 MG, UNK
     Route: 041
     Dates: start: 20180119

REACTIONS (11)
  - Neuropathy peripheral [Unknown]
  - Pyrexia [Recovered/Resolved]
  - Alopecia [Unknown]
  - Fatigue [Unknown]
  - Nausea [Unknown]
  - Dermatitis acneiform [Unknown]
  - Anaemia [Unknown]
  - Palmar-plantar erythrodysaesthesia syndrome [Unknown]
  - Pruritus [Unknown]
  - Stomatitis [Unknown]
  - Decreased appetite [Unknown]

NARRATIVE: CASE EVENT DATE: 2018
